APPROVED DRUG PRODUCT: CEFAZOLIN SODIUM
Active Ingredient: CEFAZOLIN SODIUM
Strength: EQ 10GM BASE/VIAL
Dosage Form/Route: INJECTABLE;INJECTION
Application: A065306 | Product #001 | TE Code: AP
Applicant: ACS DOBFAR SPA
Approved: Oct 22, 2008 | RLD: No | RS: No | Type: RX